FAERS Safety Report 4342636-2 (Version None)
Quarter: 2004Q1

REPORT INFORMATION
  Report Type: 
  Country: None (occurrence: None)
  Receive Date: 20040213
  Receipt Date: 20031105
  Transmission Date: 20041129
  Serious: Yes (Life-Threatening, Hospitalization)
  Sender: FDA-Public Use
  Company Number: 350934

PATIENT
  Age: 42 Year
  Sex: Male
  Weight: 81.2 kg

DRUGS (4)
  1. PEGASYS [Suspect]
     Indication: HEPATITIS C
     Dosage: 180 MCG 1 PER WEEK, INTRAMUSCULAR
     Route: 030
     Dates: start: 20030806, end: 20031120
  2. COPEGUS [Suspect]
     Indication: HEPATITIS C
     Dosage: 400 MG DAILY, ORAL
     Route: 048
     Dates: start: 20030806, end: 20031103
  3. TRIZIVIR [Concomitant]
  4. PROCRIT (EPOETIN ALFA) [Concomitant]

REACTIONS (1)
  - ANAEMIA [None]
